FAERS Safety Report 5535749-0 (Version None)
Quarter: 2007Q4

REPORT INFORMATION
  Report Type: 
  Country: None (occurrence: None)
  Receive Date: 20071206
  Receipt Date: 20070330
  Transmission Date: 20080405
  Serious: Yes (Hospitalization)
  Sender: FDA-Public Use
  Company Number: US-AMGEN-STX216379

PATIENT
  Sex: Female
  Weight: 72.6 kg

DRUGS (14)
  1. ENBREL [Suspect]
     Indication: RHEUMATOID ARTHRITIS
     Route: 058
     Dates: start: 20060823
  2. METHOTREXATE [Concomitant]
     Route: 048
     Dates: start: 20060801
  3. PLAQUENIL [Concomitant]
     Route: 048
     Dates: start: 20060801
  4. LORTAB [Concomitant]
  5. PREDNISONE TAB [Concomitant]
  6. SOMA [Concomitant]
  7. LYRICA [Concomitant]
  8. ALBUTEROL [Concomitant]
  9. FOLIC ACID [Concomitant]
  10. ISOSORBIDE DINITRATE [Concomitant]
  11. ASPIRIN [Concomitant]
  12. LIPITOR [Concomitant]
  13. PLAVIX [Concomitant]
  14. NEXIUM [Concomitant]

REACTIONS (7)
  - ARTHRALGIA [None]
  - CEREBROVASCULAR ACCIDENT [None]
  - MENTAL STATUS CHANGES [None]
  - MUSCULOSKELETAL STIFFNESS [None]
  - PAIN IN EXTREMITY [None]
  - RHEUMATOID ARTHRITIS [None]
  - SWELLING [None]
